FAERS Safety Report 11348641 (Version 1)
Quarter: 2015Q3

REPORT INFORMATION
  Report Type: Spontaneous
  Country: JP (occurrence: JP)
  Receive Date: 20150806
  Receipt Date: 20150806
  Transmission Date: 20151125
  Serious: Yes (Hospitalization)
  Sender: FDA-Public Use
  Company Number: JP-INCYTE CORPORATION-2015IN000736

PATIENT
  Age: 65 Year
  Sex: Female

DRUGS (5)
  1. JAKAFI [Suspect]
     Active Substance: RUXOLITINIB
     Dosage: 15 MG, BID
     Route: 048
  2. JAKAFI [Suspect]
     Active Substance: RUXOLITINIB
     Indication: MYELOFIBROSIS
     Dosage: 20 MG, BID
     Route: 048
     Dates: start: 20141113, end: 20150201
  3. JAKAFI [Suspect]
     Active Substance: RUXOLITINIB
     Dosage: 5 MG, UNK
     Route: 048
  4. JAKAFI [Suspect]
     Active Substance: RUXOLITINIB
     Dosage: 10 MG, BID
     Route: 048
  5. JAKAFI [Suspect]
     Active Substance: RUXOLITINIB
     Dosage: 5 MG, BID
     Route: 048

REACTIONS (4)
  - Pneumonia [Unknown]
  - Splenomegaly [Unknown]
  - Platelet count decreased [Recovered/Resolved]
  - Herpes zoster [Recovering/Resolving]

NARRATIVE: CASE EVENT DATE: 20150201
